FAERS Safety Report 5930462-X (Version None)
Quarter: 2008Q4

REPORT INFORMATION
  Report Type: 
  Country: None (occurrence: None)
  Receive Date: 20081022
  Receipt Date: 20080924
  Transmission Date: 20090506
  Serious: Yes (Hospitalization)
  Sender: FDA-Public Use
  Company Number: US023974

PATIENT
  Age: 48 Year
  Sex: Male
  Weight: 102.0593 kg

DRUGS (18)
  1. ACTIQ [Suspect]
     Indication: ARTHRALGIA
     Dosage: 400 UG PRN BUCCAL
     Route: 002
     Dates: start: 20020116, end: 20020301
  2. ACTIQ [Suspect]
     Indication: ARTHRALGIA
     Dosage: 600 UG QID BUCCAL
     Route: 002
     Dates: start: 20021122, end: 20030314
  3. ACTIQ [Suspect]
     Indication: ARTHRALGIA
     Dosage: USING 3 TO 9 LOZENGES DAILY BUCCAL
     Route: 002
     Dates: start: 20030315, end: 20030708
  4. ACTIQ [Suspect]
     Indication: ARTHRALGIA
     Dosage: 600 UG PRN BUCCAL
     Route: 002
     Dates: start: 20060209, end: 20060312
  5. ACTIQ [Suspect]
     Indication: ARTHRALGIA
     Dosage: 600 UG BID BUCCAL
     Route: 002
     Dates: start: 20060313
  6. DURAGESIC-100 [Suspect]
     Dosage: 25 UG Q1HR TRANSDERMAL
     Route: 062
     Dates: start: 20010716, end: 20010813
  7. DURAGESIC-100 [Suspect]
     Dosage: 50 UG Q1HR TRANSDERMAL
     Route: 062
     Dates: start: 20010814, end: 20020116
  8. DURAGESIC-100 [Suspect]
     Dosage: 50 UG Q1HR TRANSDERMAL
     Route: 062
     Dates: start: 20020130, end: 20020818
  9. DURAGESIC-100 [Suspect]
     Dosage: 75 UG Q1HR TRANSDERMAL
     Route: 062
     Dates: start: 20020819, end: 20020916
  10. DURAGESIC-100 [Suspect]
     Dosage: 100 UG Q1HR TRANSDERMAL
     Route: 062
     Dates: start: 20020917, end: 20030708
  11. NORCO [Suspect]
     Dosage: 10 MG 10MG HYDROCODONE/ 325MG ACETAMINOPHEN Q4HR ORAL
     Route: 048
     Dates: start: 20030314, end: 20030708
  12. ULTRAM [Suspect]
     Dosage: PRN
     Dates: start: 20010611, end: 20020130
  13. NEURONTIN [Suspect]
     Dosage: ESCALATING DOSE
     Dates: start: 20010611, end: 20010912
  14. NEURONTIN [Suspect]
     Dosage: 400 MG TID
     Dates: start: 20010913, end: 20030101
  15. VICOPROFEN [Suspect]
     Indication: BREAKTHROUGH PAIN
     Dosage: PRN
     Dates: start: 20010913, end: 20030201
  16. AMBIEN [Concomitant]
  17. ATIVAN [Concomitant]
  18. EFFEXOR [Concomitant]

REACTIONS (12)
  - ARTHRALGIA [None]
  - COGNITIVE DISORDER [None]
  - DEPENDENCE [None]
  - DRUG DEPENDENCE [None]
  - FATIGUE [None]
  - HALLUCINATION, AUDITORY [None]
  - INADEQUATE ANALGESIA [None]
  - OVERDOSE [None]
  - SLEEP DISORDER [None]
  - SOMNOLENCE [None]
  - TOOTH LOSS [None]
  - WEIGHT BEARING DIFFICULTY [None]
